FAERS Safety Report 7668310-2 (Version None)
Quarter: 2011Q3

REPORT INFORMATION
  Report Type: 
  Country: None (occurrence: None)
  Receive Date: 20110808
  Receipt Date: 20110804
  Transmission Date: 20111222
  Serious: Yes (Death, Hospitalization, Other)
  Sender: FDA-Public Use
  Company Number: US-PFIZER INC-2011169703

PATIENT
  Sex: Male

DRUGS (1)
  1. SUTENT [Suspect]
     Indication: RENAL CANCER
     Dosage: 50 MG, 1X/DAY
     Dates: start: 20110706, end: 20110724

REACTIONS (4)
  - RENAL CANCER [None]
  - BLOOD CREATININE INCREASED [None]
  - DISEASE PROGRESSION [None]
  - DEHYDRATION [None]
